FAERS Safety Report 5887665-2 (Version None)
Quarter: 2008Q3

REPORT INFORMATION
  Report Type: 
  Country: None (occurrence: None)
  Receive Date: 20080916
  Receipt Date: 20080909
  Transmission Date: 20090109
  Serious: Yes (Other)
  Sender: FDA-Public Use
  Company Number: CHPA2008US15066

PATIENT
  Age: 80 Year
  Sex: Male
  Weight: 77.1 kg

DRUGS (1)
  1. TRANSDERM SCOP [Suspect]
     Indication: MOTION SICKNESS
     Dosage: 1.5MG, Q2HM, TRANSDERMAL
     Route: 062
     Dates: end: 20071101

REACTIONS (2)
  - APPLICATION SITE REACTION [None]
  - SKIN CANCER [None]
